FAERS Safety Report 5739700-X (Version None)
Quarter: 2008Q2

REPORT INFORMATION
  Report Type: 
  Country: None (occurrence: None)
  Receive Date: 20080513
  Receipt Date: 20080424
  Transmission Date: 20081010
  Serious: Yes (Hospitalization, Other)
  Sender: FDA-Public Use
  Company Number: S08-GER-01050-01

PATIENT
  Age: 60 Year
  Sex: Female
  Weight: 50 kg

DRUGS (4)
  1. CITALOPRAM HYDROBROMIDE [Suspect]
     Indication: DEPRESSION
     Dosage: 20 MG QD PO
     Route: 048
     Dates: start: 20060101
  2. KEPPRA [Suspect]
     Indication: EPILEPSY
     Dosage: 500 MG TID PO
     Route: 048
     Dates: start: 20071201
  3. MELPERON (MELPERONE) [Concomitant]
  4. LAMICTAL [Concomitant]

REACTIONS (1)
  - WEIGHT DECREASED [None]
